FAERS Safety Report 15082055 (Version 1)
Quarter: 2018Q2

REPORT INFORMATION
  Report Type: Spontaneous
  Country: US (occurrence: US)
  Receive Date: 20180628
  Receipt Date: 20180628
  Transmission Date: 20180711
  Serious: No
  Sender: FDA-Public Use
  Company Number: US-TEVA-2018-US-914129

PATIENT
  Sex: Female

DRUGS (1)
  1. LIDOCAINE W/PRILOCAINE [Suspect]
     Active Substance: LIDOCAINE\PRILOCAINE
     Indication: PAIN
     Dosage: 2.5/2.5%
     Route: 065

REACTIONS (1)
  - Product use in unapproved indication [Unknown]
